FAERS Safety Report 18208670 (Version 1)
Quarter: 2020Q3

REPORT INFORMATION
  Report Type: Spontaneous
  Country: US (occurrence: US)
  Receive Date: 20200828
  Receipt Date: 20200828
  Transmission Date: 20201103
  Serious: No
  Sender: FDA-Public Use
  Company Number: US-009507513-2008USA009553

PATIENT
  Age: 80 Year
  Sex: Female

DRUGS (1)
  1. KEYTRUDA [Suspect]
     Active Substance: PEMBROLIZUMAB
     Indication: LUNG NEOPLASM MALIGNANT
     Dosage: 8 MILLILITER
     Route: 042
     Dates: start: 20170822

REACTIONS (6)
  - Acne [Not Recovered/Not Resolved]
  - Scab [Not Recovered/Not Resolved]
  - Blister [Not Recovered/Not Resolved]
  - Skin papilloma [Not Recovered/Not Resolved]
  - Skin lesion [Not Recovered/Not Resolved]
  - Immune system disorder [Not Recovered/Not Resolved]

NARRATIVE: CASE EVENT DATE: 2020
